FAERS Safety Report 4383254-X (Version None)
Quarter: 2004Q2

REPORT INFORMATION
  Report Type: 
  Country: None (occurrence: None)
  Receive Date: 20040622
  Receipt Date: 20040622
  Transmission Date: 20050107
  Serious: Yes (Other)
  Sender: FDA-Public Use
  Company Number: None

PATIENT
  Age: 47 Year
  Sex: Female
  Weight: 56.6996 kg

DRUGS (1)
  1. ZOLOFT [Suspect]
     Indication: PANIC DISORDER
     Dates: start: 20010111, end: 20020620

REACTIONS (16)
  - AGGRESSION [None]
  - ANGER [None]
  - CHEST PAIN [None]
  - CRYING [None]
  - DEPRESSION [None]
  - DYSPEPSIA [None]
  - EYE PAIN [None]
  - FALL [None]
  - HEPATITIS C [None]
  - MUSCULAR WEAKNESS [None]
  - SELF-INJURIOUS IDEATION [None]
  - SEXUAL DYSFUNCTION [None]
  - SUICIDAL IDEATION [None]
  - THINKING ABNORMAL [None]
  - VISION BLURRED [None]
  - WEIGHT DECREASED [None]
